FAERS Safety Report 6780444-3 (Version None)
Quarter: 2010Q2

REPORT INFORMATION
  Report Type: 
  Country: None (occurrence: None)
  Receive Date: 20100620
  Receipt Date: 20100616
  Transmission Date: 20101027
  Serious: Yes (Other)
  Sender: FDA-Public Use
  Company Number: GB-BRISTOL-MYERS SQUIBB COMPANY-15151954

PATIENT
  Age: 81 Year
  Sex: Male

DRUGS (10)
  1. SAXAGLIPTIN [Suspect]
     Indication: DIABETES MELLITUS
     Route: 048
     Dates: start: 20100312, end: 20100429
  2. ASPIRIN [Concomitant]
  3. CANDESARTAN [Concomitant]
  4. CO-AMILOFRUSE [Concomitant]
  5. GLICLAZIDE [Concomitant]
  6. ISOSORBIDE [Concomitant]
  7. MOMETASONE FUROATE [Concomitant]
  8. ACETAMINOPHEN [Concomitant]
  9. QUININE SULFATE [Concomitant]
  10. STERCULIA [Concomitant]
     Dosage: STRENGTH-62 PERCENT

REACTIONS (1)
  - CARDIAC FAILURE [None]
